FAERS Safety Report 18322884 (Version 1)
Quarter: 2020Q3

REPORT INFORMATION
  Report Type: Spontaneous
  Country: NL (occurrence: NL)
  Receive Date: 20200929
  Receipt Date: 20200929
  Transmission Date: 20201103
  Serious: Yes (Hospitalization, Other)
  Sender: FDA-Public Use
  Company Number: NL-ACCORD-202873

PATIENT
  Age: 12 Year
  Sex: Male

DRUGS (10)
  1. RITUXIMAB. [Suspect]
     Active Substance: RITUXIMAB
     Indication: HASHIMOTO^S ENCEPHALOPATHY
     Dosage: 375 MG/ M2 WEEKLY FOR FOUR WEEKS
     Route: 042
  2. MYCOPHENOLIC ACID. [Suspect]
     Active Substance: MYCOPHENOLIC ACID
     Indication: PRODUCT USED FOR UNKNOWN INDICATION
     Dosage: 1 G, QD
     Route: 065
  3. PREDNISONE. [Suspect]
     Active Substance: PREDNISONE
     Indication: HASHIMOTO^S ENCEPHALOPATHY
     Dosage: 5 MG/DAY EVERY OTHER DAY
     Route: 048
  4. METHYLPREDNISOLONE. [Suspect]
     Active Substance: METHYLPREDNISOLONE
     Indication: HASHIMOTO^S ENCEPHALOPATHY
     Dosage: 15 MG/KG/DAY FOR THREE CONSECUTIVE DAYS
     Route: 065
  5. MYCOPHENOLIC ACID. [Suspect]
     Active Substance: MYCOPHENOLIC ACID
     Indication: HASHIMOTO^S ENCEPHALOPATHY
     Route: 065
  6. PREDNISONE. [Suspect]
     Active Substance: PREDNISONE
     Indication: HASHIMOTO^S ENCEPHALOPATHY
     Dosage: 7.5 MG/DAY
     Route: 048
  7. PREDNISONE. [Suspect]
     Active Substance: PREDNISONE
     Indication: HASHIMOTO^S ENCEPHALOPATHY
     Dosage: 1 MG/KG/DAY
     Route: 048
  8. PREDNISONE. [Suspect]
     Active Substance: PREDNISONE
     Indication: HASHIMOTO^S ENCEPHALOPATHY
     Dosage: 20 MG/DAY
     Route: 048
  9. LEVOTHYROXINE. [Concomitant]
     Active Substance: LEVOTHYROXINE
     Indication: HASHIMOTO^S ENCEPHALOPATHY
     Dosage: 5 MG, Q.O.D.
     Route: 065
  10. METHYLPREDNISOLONE. [Suspect]
     Active Substance: METHYLPREDNISOLONE
     Indication: HASHIMOTO^S ENCEPHALOPATHY
     Dosage: PULSE THERAPY
     Route: 065

REACTIONS (14)
  - Headache [Recovering/Resolving]
  - Orchitis [Unknown]
  - Abdominal abscess [Unknown]
  - Hypogammaglobulinaemia [Unknown]
  - Cushing^s syndrome [Unknown]
  - Disease recurrence [Unknown]
  - Condition aggravated [Unknown]
  - Confusional state [Recovering/Resolving]
  - Hashimoto^s encephalopathy [Recovering/Resolving]
  - Disturbance in attention [Recovering/Resolving]
  - Drug ineffective [Unknown]
  - Ureaplasma infection [Unknown]
  - Hypertension [Unknown]
  - Off label use [Unknown]
